FAERS Safety Report 4641467-3 (Version None)
Quarter: 2005Q2

REPORT INFORMATION
  Report Type: 
  Country: None (occurrence: None)
  Receive Date: 20050421
  Receipt Date: 20050210
  Transmission Date: 20051028
  Serious: Yes (Hospitalization, Other)
  Sender: FDA-Public Use
  Company Number: PHEH2005US01993

PATIENT
  Age: 57 Year
  Sex: Female
  Weight: 79 kg

DRUGS (11)
  1. DIOVAN HCT [Suspect]
     Indication: HYPERTENSION
     Dosage: 1 TABLET, QD
     Route: 048
     Dates: start: 20040624, end: 20041103
  2. REBIF [Suspect]
     Indication: MULTIPLE SCLEROSIS
     Dosage: 44 UG, TIW
     Route: 058
     Dates: start: 20040713
  3. NORVASK [Concomitant]
     Indication: HYPERTENSION
  4. MAXZIDE [Concomitant]
     Indication: HYPERTENSION
     Dosage: 37.5/25
  5. CELEXA [Concomitant]
     Dosage: 20 MG, UNK
  6. NEURONTIN [Concomitant]
     Indication: PARAESTHESIA
     Dosage: 600 MG, TID
     Route: 048
     Dates: start: 20040624
  7. LORTAB [Concomitant]
     Indication: PAIN
     Dosage: 7.5/500
  8. RELAFEN [Concomitant]
     Indication: ARTHRITIS
  9. PREMARINA [Concomitant]
  10. NEXIUM [Concomitant]
     Dates: start: 20040101
  11. DIAMOX [Concomitant]
     Indication: GLAUCOMA
     Dosage: 500 MG, BID
     Route: 048
     Dates: start: 20040624

REACTIONS (10)
  - ASTHENIA [None]
  - BACK PAIN [None]
  - BLOOD POTASSIUM DECREASED [None]
  - CHEST PAIN [None]
  - ELECTROLYTE IMBALANCE [None]
  - HYPOKALAEMIA [None]
  - MULTIPLE SCLEROSIS [None]
  - NAUSEA [None]
  - PAIN [None]
  - PYREXIA [None]
